FAERS Safety Report 8090313-7 (Version None)
Quarter: 2012Q1

REPORT INFORMATION
  Report Type: 
  Country: None (occurrence: None)
  Receive Date: 20120129
  Receipt Date: 20111111
  Transmission Date: 20120608
  Serious: No
  Sender: FDA-Public Use
  Company Number: US-ABBOTT-11P-163-0873652-00

PATIENT
  Age: 21 Year
  Sex: Male

DRUGS (4)
  1. LEVOXYL [Concomitant]
     Indication: THYROID DISORDER
     Dosage: DAILY
  2. HUMIRA [Suspect]
     Dates: start: 20111028, end: 20111028
  3. HUMIRA [Suspect]
  4. HUMIRA [Suspect]
     Indication: PSORIASIS
     Dosage: LOADING DOSE
     Dates: start: 20111021, end: 20111021

REACTIONS (4)
  - OCULAR HYPERAEMIA [None]
  - COUGH [None]
  - NASAL CONGESTION [None]
  - OROPHARYNGEAL PAIN [None]
